FAERS Safety Report 17484596 (Version 1)
Quarter: 2020Q1

REPORT INFORMATION
  Report Type: Spontaneous
  Country: US (occurrence: US)
  Receive Date: 20200302
  Receipt Date: 20200302
  Transmission Date: 20200409
  Serious: Yes (Other)
  Sender: FDA-Public Use
  Company Number: US-SUNOVION-2020SUN000624

PATIENT
  Sex: Female
  Weight: 91.8 kg

DRUGS (1)
  1. APTIOM [Suspect]
     Active Substance: ESLICARBAZEPINE ACETATE
     Indication: SEIZURE
     Dosage: 800 MG
     Route: 048

REACTIONS (3)
  - Seizure [Recovered/Resolved]
  - Yawning [Not Recovered/Not Resolved]
  - Ear discomfort [Not Recovered/Not Resolved]
